FAERS Safety Report 8943944 (Version 2)
Quarter: 2012Q4

REPORT INFORMATION
  Report Type: 
  Country: JP (occurrence: JP)
  Receive Date: 20121204
  Receipt Date: 20121219
  Transmission Date: 20130627
  Serious: Yes (Hospitalization)
  Sender: FDA-Public Use
  Company Number: JP-PFIZER INC-2012302455

PATIENT
  Age: 62 Year
  Sex: Female

DRUGS (4)
  1. ADRIACIN [Suspect]
     Indication: ACUTE LYMPHOBLASTIC LEUKAEMIA
     Dosage: UNK
  2. CYCLOPHOSPHAMIDE [Suspect]
     Indication: ACUTE LYMPHOBLASTIC LEUKAEMIA
     Dosage: UNK
  3. VINCRISTINE SULFATE [Suspect]
     Indication: ACUTE LYMPHOBLASTIC LEUKAEMIA
     Dosage: UNK
  4. PREDNISOLONE [Suspect]
     Indication: ACUTE LYMPHOBLASTIC LEUKAEMIA
     Dosage: UNK

REACTIONS (3)
  - Posterior reversible encephalopathy syndrome [Recovered/Resolved]
  - Cerebral haemorrhage [Recovered/Resolved]
  - Hyponatraemia [Recovered/Resolved]
